FAERS Safety Report 6975264-0 (Version None)
Quarter: 2010Q3

REPORT INFORMATION
  Report Type: 
  Country: None (occurrence: None)
  Receive Date: 20100910
  Receipt Date: 20090225
  Transmission Date: 20110219
  Serious: No
  Sender: FDA-Public Use
  Company Number: US-WYE-H08367809

PATIENT
  Sex: Female
  Weight: 61.29 kg

DRUGS (3)
  1. PRISTIQ [Suspect]
     Indication: DEPRESSION
     Route: 048
     Dates: start: 20090224
  2. WELLBUTRIN [Concomitant]
  3. AMBIEN CR [Concomitant]

REACTIONS (2)
  - FEELING JITTERY [None]
  - INSOMNIA [None]
